FAERS Safety Report 23310401 (Version 1)
Quarter: 2023Q4

REPORT INFORMATION
  Report Type: Spontaneous
  Country: US (occurrence: US)
  Receive Date: 20231218
  Receipt Date: 20231218
  Transmission Date: 20240110
  Serious: No
  Sender: FDA-Public Use
  Company Number: US-PROGENICS PHARMACEUTICALS-LMI-2023-01118

PATIENT
  Age: 77 Year
  Sex: Male
  Weight: 113 kg

DRUGS (1)
  1. PYLARIFY [Suspect]
     Active Substance: PIFLUFOLASTAT F-18
     Indication: Positron emission tomogram
     Dosage: UNK
     Route: 042
     Dates: start: 20230919, end: 20230919

REACTIONS (5)
  - Penile ulceration [Not Recovered/Not Resolved]
  - Penile discomfort [Not Recovered/Not Resolved]
  - Penile pain [Not Recovered/Not Resolved]
  - Penile erythema [Not Recovered/Not Resolved]
  - Catheter site pustule [Not Recovered/Not Resolved]

NARRATIVE: CASE EVENT DATE: 20230920
